FAERS Safety Report 7337786 (Version 2)
Quarter: 2019Q1

REPORT INFORMATION
  Report Type: Spontaneous
  Country: GB (occurrence: GB)
  Receive Date: 20100330
  Receipt Date: 20190226
  Transmission Date: 20190418
  Serious: Yes (Other)
  Sender: FDA-Public Use
  Company Number: GB-PFIZER INC-2010034656

PATIENT
  Age: 45 Year

DRUGS (2)
  1. CERAZETTE [Concomitant]
     Indication: CONTRACEPTION
     Dosage: 75 UG UNIT DOSE
     Route: 048
  2. CHAMPIX [Suspect]
     Active Substance: VARENICLINE TARTRATE
     Indication: SMOKING CESSATION THERAPY
     Dosage: 1 G UNIT DOSE
     Route: 048
     Dates: start: 200912

REACTIONS (2)
  - Alopecia [Not Recovered/Not Resolved]
  - Depressed mood [Unknown]
